FAERS Safety Report 17186800 (Version 4)
Quarter: 2022Q2

REPORT INFORMATION
  Report Type: Spontaneous
  Country: US (occurrence: US)
  Receive Date: 20191220
  Receipt Date: 20220609
  Transmission Date: 20220721
  Serious: Yes (Other)
  Sender: FDA-Public Use
  Company Number: US-PFIZER INC-2015066190

PATIENT
  Age: 72 Year
  Sex: Male

DRUGS (2)
  1. SKELAXIN [Suspect]
     Active Substance: METAXALONE
     Indication: Arthritis
     Dosage: 800 MG, 2X/DAY (TAKE 1 TO 2 TABS PO BID PRN)
     Route: 048
  2. SKELAXIN [Suspect]
     Active Substance: METAXALONE
     Indication: Bursitis

REACTIONS (7)
  - Back pain [Unknown]
  - Hernia [Unknown]
  - Product prescribing error [Unknown]
  - Reading disorder [Unknown]
  - Dysgraphia [Unknown]
  - Spondylitis [Unknown]
  - Gout [Unknown]
